FAERS Safety Report 6981984-4 (Version None)
Quarter: 2010Q3

REPORT INFORMATION
  Report Type: 
  Country: None (occurrence: None)
  Receive Date: 20100914
  Receipt Date: 20091209
  Transmission Date: 20110219
  Serious: No
  Sender: FDA-Public Use
  Company Number: US-PFIZER INC-2009271991

PATIENT
  Sex: Male
  Weight: 108.84 kg

DRUGS (5)
  1. LYRICA [Suspect]
     Indication: PAIN IN EXTREMITY
     Dosage: 50 MG, 2X/DAY
     Route: 048
     Dates: start: 20090901
  2. LYRICA [Suspect]
     Indication: TENDON PAIN
  3. INSULIN [Concomitant]
     Indication: DIABETES MELLITUS
  4. ACTOS [Concomitant]
     Dosage: 30 MG, DAILY
  5. METFORMIN [Concomitant]

REACTIONS (1)
  - BLOOD GLUCOSE DECREASED [None]
